FAERS Safety Report 18843762 (Version 1)
Quarter: 2021Q1

REPORT INFORMATION
  Report Type: Spontaneous
  Country: US (occurrence: US)
  Receive Date: 20210204
  Receipt Date: 20210204
  Transmission Date: 20210419
  Serious: No
  Sender: FDA-Public Use
  Company Number: None

PATIENT
  Age: 72 Year
  Sex: Male
  Weight: 117.9 kg

DRUGS (16)
  1. ACETAMINOPHEN 325MG [Concomitant]
  2. FUROSEMIDE 40MG [Concomitant]
     Active Substance: FUROSEMIDE
  3. LORATADINE 10MG [Concomitant]
     Active Substance: LORATADINE
  4. TAMSULOSIN 0.4MG [Concomitant]
     Active Substance: TAMSULOSIN
  5. ABIRATERONE ACETATE. [Suspect]
     Active Substance: ABIRATERONE ACETATE
     Indication: PROSTATE CANCER
     Route: 048
     Dates: start: 20200626
  6. PROMETHAZINE 25MG [Concomitant]
  7. POTASSIUM CHLORIDE ER 10MEQ [Concomitant]
     Active Substance: POTASSIUM CHLORIDE
  8. DEXAMETHASONE 4MG [Concomitant]
     Active Substance: DEXAMETHASONE
  9. LORAZEPAM 1MG [Concomitant]
     Active Substance: LORAZEPAM
  10. ATENOLOL 25MG [Concomitant]
     Active Substance: ATENOLOL
  11. LOSARTAN 100MG [Concomitant]
     Active Substance: LOSARTAN
  12. LOVASTATIN 10MG [Concomitant]
  13. CALCIUM 500 + D 500?200 MG?UNIT [Concomitant]
  14. HYDROCHLOROTHIAZIDE 25MG [Concomitant]
     Active Substance: HYDROCHLOROTHIAZIDE
  15. OMEPRAZOLE 20MG [Concomitant]
     Active Substance: OMEPRAZOLE
  16. ONDANSETRON 8MG [Concomitant]
     Active Substance: ONDANSETRON

REACTIONS (1)
  - Muscle spasms [None]

NARRATIVE: CASE EVENT DATE: 20210204
